FAERS Safety Report 8287106-4 (Version None)
Quarter: 2012Q2

REPORT INFORMATION
  Report Type: 
  Country: None (occurrence: None)
  Receive Date: 20120416
  Receipt Date: 20120403
  Transmission Date: 20120825
  Serious: Yes (Other)
  Sender: FDA-Public Use
  Company Number: US-ROCHE-1051989

PATIENT
  Sex: Female
  Weight: 41.95 kg

DRUGS (1)
  1. HERCEPTIN [Suspect]
     Indication: BREAST CANCER
     Route: 042
     Dates: start: 20101228

REACTIONS (5)
  - FEELING ABNORMAL [None]
  - FATIGUE [None]
  - HEADACHE [None]
  - BLOOD CALCIUM INCREASED [None]
  - NAUSEA [None]
